FAERS Safety Report 21897018 (Version 46)
Quarter: 2024Q1

REPORT INFORMATION
  Report Type: Other
  Country: OM (occurrence: None)
  Receive Date: 20230123
  Receipt Date: 20240130
  Transmission Date: 20240409
  Serious: Yes (Hospitalization, Other)
  Sender: FDA-Public Use
  Company Number: OM-ROCHE-3268514

PATIENT
  Age: 64 Year
  Sex: Female
  Weight: 81.6 kg

DRUGS (90)
  1. ATEZOLIZUMAB [Suspect]
     Active Substance: ATEZOLIZUMAB
     Indication: Hepatocellular carcinoma
     Dosage: START DATE AND END DATE OF MOST RECENT DOSE OF STUDY DRUG PRIOR TO AE WAS 17/JAN/2023 (1200 MG) AND
     Route: 041
     Dates: start: 20221225
  2. BEVACIZUMAB [Suspect]
     Active Substance: BEVACIZUMAB
     Indication: Hepatocellular carcinoma
     Route: 065
     Dates: start: 20221225
  3. CHLORPHENIRAMINE [Concomitant]
     Active Substance: CHLORPHENIRAMINE
     Dates: start: 20221225, end: 20221225
  4. CHLORPHENIRAMINE [Concomitant]
     Active Substance: CHLORPHENIRAMINE
     Dates: start: 20230117, end: 20230117
  5. CHLORPHENIRAMINE [Concomitant]
     Active Substance: CHLORPHENIRAMINE
     Dates: start: 20230407, end: 20230407
  6. CHLORPHENIRAMINE [Concomitant]
     Active Substance: CHLORPHENIRAMINE
     Dates: start: 20230414
  7. LEVOTHYROXINE [Concomitant]
     Active Substance: LEVOTHYROXINE\LEVOTHYROXINE SODIUM
     Dates: start: 20120101
  8. AMLODIPINE [Concomitant]
     Active Substance: AMLODIPINE BESYLATE
     Dates: start: 20120101
  9. AMOXICILLIN [Concomitant]
     Active Substance: AMOXICILLIN
     Dates: start: 20221213, end: 20221220
  10. AMOXICILLIN [Concomitant]
     Active Substance: AMOXICILLIN
     Dates: start: 20230205, end: 20230217
  11. LEVOFLOXACIN [Concomitant]
     Active Substance: LEVOFLOXACIN
     Dates: start: 20221213, end: 20221220
  12. LEVOFLOXACIN [Concomitant]
     Active Substance: LEVOFLOXACIN
     Dates: start: 20230205, end: 20230217
  13. METOCLOPRAMIDE [Concomitant]
     Active Substance: METOCLOPRAMIDE
     Dates: start: 20221225, end: 20230321
  14. METOCLOPRAMIDE [Concomitant]
     Active Substance: METOCLOPRAMIDE
     Dates: start: 20230319, end: 20230321
  15. METOCLOPRAMIDE [Concomitant]
     Active Substance: METOCLOPRAMIDE
     Dates: start: 20230327, end: 20230328
  16. METOCLOPRAMIDE [Concomitant]
     Active Substance: METOCLOPRAMIDE
     Dates: start: 20230407, end: 20230410
  17. METOCLOPRAMIDE [Concomitant]
     Active Substance: METOCLOPRAMIDE
     Dates: start: 20230414, end: 20230421
  18. METOCLOPRAMIDE [Concomitant]
     Active Substance: METOCLOPRAMIDE
     Dates: start: 20230421, end: 20230427
  19. METOCLOPRAMIDE [Concomitant]
     Active Substance: METOCLOPRAMIDE
     Dates: start: 20230502, end: 20230504
  20. METOCLOPRAMIDE [Concomitant]
     Active Substance: METOCLOPRAMIDE
     Dates: start: 20230508
  21. METOCLOPRAMIDE [Concomitant]
     Active Substance: METOCLOPRAMIDE
     Dates: start: 20230601
  22. METOCLOPRAMIDE [Concomitant]
     Active Substance: METOCLOPRAMIDE
     Dates: start: 20230601, end: 20230604
  23. METOCLOPRAMIDE [Concomitant]
     Active Substance: METOCLOPRAMIDE
     Dates: start: 20230531, end: 20230531
  24. CELECOXIB [Concomitant]
     Active Substance: CELECOXIB
     Dates: start: 20230129, end: 20230130
  25. OMEPRAZOLE [Concomitant]
     Active Substance: OMEPRAZOLE
     Dates: start: 20221213, end: 20221220
  26. OMEPRAZOLE [Concomitant]
     Active Substance: OMEPRAZOLE
     Dates: start: 20230126, end: 20230129
  27. BISACODYL [Concomitant]
     Active Substance: BISACODYL
     Dates: start: 20230227, end: 20230320
  28. DIMETHICONE [Concomitant]
     Active Substance: DIMETHICONE
     Indication: Abdominal distension
     Dates: start: 20230227, end: 20230228
  29. DIMETHICONE [Concomitant]
     Active Substance: DIMETHICONE
     Dates: start: 20230222, end: 20230227
  30. DIMETHICONE [Concomitant]
     Active Substance: DIMETHICONE
     Dates: start: 20230228
  31. DIMETHICONE [Concomitant]
     Active Substance: DIMETHICONE
     Dates: start: 20230510
  32. MILK OF MAGNESIA [Concomitant]
     Active Substance: MAGNESIUM HYDROXIDE
     Dates: start: 20230222, end: 20230227
  33. MILK OF MAGNESIA [Concomitant]
     Active Substance: MAGNESIUM HYDROXIDE
     Dates: start: 20230407
  34. SORAFENIB [Concomitant]
     Active Substance: SORAFENIB
     Dates: start: 20230216, end: 20230416
  35. PANTOPRAZOLE [Concomitant]
     Active Substance: PANTOPRAZOLE
     Dates: start: 20230202
  36. BUTYLSCOPOLAMINE BROMIDE [Concomitant]
     Active Substance: BUTYLSCOPOLAMINE BROMIDE
     Route: 065
     Dates: start: 20230319, end: 20230321
  37. GRANISETRONE [Concomitant]
     Dates: start: 20230228, end: 20230228
  38. GRANISETRONE [Concomitant]
     Dates: start: 20230319, end: 20230321
  39. GRANISETRONE [Concomitant]
     Dates: start: 20230407, end: 20230410
  40. GRANISETRONE [Concomitant]
     Dates: start: 20230419, end: 20230419
  41. GRANISETRONE [Concomitant]
     Dates: start: 20230421, end: 20230421
  42. GRANISETRONE [Concomitant]
     Dosage: ONGOING :YES
     Dates: start: 20230613, end: 20230615
  43. CHOLECALCIFEROL [Concomitant]
     Active Substance: CHOLECALCIFEROL
     Dates: start: 20230222
  44. MORPHINE SULFATE [Concomitant]
     Active Substance: MORPHINE SULFATE
     Dates: start: 20230320, end: 20230320
  45. MORPHINE SULFATE [Concomitant]
     Active Substance: MORPHINE SULFATE
     Dates: start: 20230518, end: 20230524
  46. MORPHINE SULFATE [Concomitant]
     Active Substance: MORPHINE SULFATE
     Dates: start: 20230420, end: 20230420
  47. CYCLIZINE [Concomitant]
     Active Substance: CYCLIZINE
     Dosage: END DATE 28-MAR-2023
     Dates: start: 20230327, end: 20230328
  48. PROPRANOLOL [Concomitant]
     Active Substance: PROPRANOLOL HYDROCHLORIDE
     Dates: start: 20230202
  49. DOMPERIDONE [Concomitant]
     Active Substance: DOMPERIDONE
     Dates: start: 20230321
  50. DOMPERIDONE [Concomitant]
     Active Substance: DOMPERIDONE
     Dates: start: 20230603
  51. MIRTAZAPINE [Concomitant]
     Active Substance: MIRTAZAPINE
     Dosage: MEDICATION FREQUENCY UNKNOWN
     Dates: start: 20230328
  52. PREDNISONE [Concomitant]
     Active Substance: PREDNISONE
     Indication: Tinnitus
     Dates: start: 20230115, end: 20230117
  53. POTASSIUM CHLORIDE [Concomitant]
     Active Substance: POTASSIUM CHLORIDE
     Dates: start: 20230131, end: 20230201
  54. URSODIOL [Concomitant]
     Active Substance: URSODIOL
     Dates: start: 20230407
  55. DOXIPROCT PLUS [Concomitant]
     Indication: Haemorrhoids
     Dates: start: 20230407
  56. MOXAL PLUS [Concomitant]
     Dates: start: 20230407, end: 20230410
  57. CEFTRIAXONE [Concomitant]
     Active Substance: CEFTRIAXONE\CEFTRIAXONE SODIUM
     Dates: start: 20230407, end: 20230410
  58. CEFTRIAXONE [Concomitant]
     Active Substance: CEFTRIAXONE\CEFTRIAXONE SODIUM
     Dates: start: 20230610, end: 20230615
  59. FENTANYL [Concomitant]
     Active Substance: FENTANYL\FENTANYL CITRATE
     Dates: start: 20230407, end: 20230407
  60. FENTANYL [Concomitant]
     Active Substance: FENTANYL\FENTANYL CITRATE
     Dates: start: 20230419, end: 20230419
  61. FENTANYL [Concomitant]
     Active Substance: FENTANYL\FENTANYL CITRATE
     Dates: start: 20230516, end: 20230604
  62. OCTREOTIDE [Concomitant]
     Active Substance: OCTREOTIDE\OCTREOTIDE ACETATE
     Dates: start: 20230407, end: 20230407
  63. DEXAMETHASONE [Concomitant]
     Active Substance: DEXAMETHASONE
     Dates: start: 20230407, end: 20230407
  64. DEXAMETHASONE [Concomitant]
     Active Substance: DEXAMETHASONE
     Dates: start: 20230310, end: 20230310
  65. DEXAMETHASONE [Concomitant]
     Active Substance: DEXAMETHASONE
     Dates: start: 20230419, end: 20230419
  66. DEXAMETHASONE [Concomitant]
     Active Substance: DEXAMETHASONE
     Dates: start: 20230614, end: 20230615
  67. MIDAZOLAM [Concomitant]
     Active Substance: MIDAZOLAM
     Dates: start: 20230409, end: 20230409
  68. MIDAZOLAM [Concomitant]
     Active Substance: MIDAZOLAM
     Dates: start: 20230521, end: 20230521
  69. CISATRACURIUM [Concomitant]
     Active Substance: CISATRACURIUM
     Indication: Endoscopy
     Dates: start: 20230419, end: 20230419
  70. DEXTROSE AND SODIUM CHLORIDE [Concomitant]
     Active Substance: DEXTROSE MONOHYDRATE\SODIUM CHLORIDE
     Dates: start: 20230417, end: 20230417
  71. DEXTROSE AND SODIUM CHLORIDE [Concomitant]
     Active Substance: DEXTROSE MONOHYDRATE\SODIUM CHLORIDE
     Dates: start: 20230517, end: 20230517
  72. POTASSIUM PHOSPHATE [Concomitant]
     Active Substance: POTASSIUM PHOSPHATE
     Dates: start: 20230421, end: 20230421
  73. MAGNESIUM SULFATE [Concomitant]
     Active Substance: MAGNESIUM SULFATE\MAGNESIUM SULFATE HEPTAHYDRATE
     Dates: start: 20230421, end: 20230421
  74. MAGNESIUM OXIDE [Concomitant]
     Active Substance: MAGNESIUM OXIDE
     Dates: start: 20230422, end: 20230422
  75. SPIRONOLACTONE [Concomitant]
     Active Substance: SPIRONOLACTONE
     Dates: start: 20230424
  76. FUROSEMIDE [Concomitant]
     Active Substance: FUROSEMIDE
     Dates: start: 20230426
  77. PIPERACILLIN AND TAZOBACTAM [Concomitant]
     Active Substance: PIPERACILLIN SODIUM\TAZOBACTAM SODIUM
     Dates: start: 20230418, end: 20230421
  78. KETOROLAC [Concomitant]
     Active Substance: KETOROLAC TROMETHAMINE
     Dates: start: 20230528, end: 20230528
  79. NYSTATIN [Concomitant]
     Active Substance: NYSTATIN
     Dates: start: 20230514
  80. FUSIDIC ACID [Concomitant]
     Active Substance: FUSIDIC ACID
     Dates: start: 20230530
  81. FLETCHERS PHOSPHAT [Concomitant]
     Dates: start: 20230512, end: 20230512
  82. CHLORPROMAZINE [Concomitant]
     Active Substance: CHLORPROMAZINE
     Dates: start: 20230514, end: 20230516
  83. CHLORPROMAZINE [Concomitant]
     Active Substance: CHLORPROMAZINE
     Dates: start: 20230514, end: 20230517
  84. CHLORPROMAZINE [Concomitant]
     Active Substance: CHLORPROMAZINE
     Dates: start: 20230517, end: 20230524
  85. FLETCHERS PHOSPHATE ENEMA [Concomitant]
     Dates: start: 20230518
  86. FLETCHERS PHOSPHATE ENEMA [Concomitant]
     Dates: start: 20230528
  87. ZOLPIDEM TARTRATE [Concomitant]
     Active Substance: ZOLPIDEM TARTRATE
     Indication: Sedation
     Dates: start: 20230521, end: 20230521
  88. LIDOCAINE [Concomitant]
     Active Substance: LIDOCAINE
     Dates: start: 20230530
  89. ACETAMINOPHEN [Concomitant]
     Active Substance: ACETAMINOPHEN
     Indication: Portal hypertension
     Dates: start: 20221225
  90. ACETAMINOPHEN [Concomitant]
     Active Substance: ACETAMINOPHEN
     Indication: Tinnitus

REACTIONS (27)
  - Drug-induced liver injury [Not Recovered/Not Resolved]
  - Abdominal pain upper [Not Recovered/Not Resolved]
  - Portal vein thrombosis [Not Recovered/Not Resolved]
  - Hypokalaemia [Not Recovered/Not Resolved]
  - Portal hypertension [Not Recovered/Not Resolved]
  - Abdominal pain [Recovered/Resolved]
  - Nausea [Not Recovered/Not Resolved]
  - Vomiting [Not Recovered/Not Resolved]
  - Ascites [Not Recovered/Not Resolved]
  - Lower gastrointestinal haemorrhage [Not Recovered/Not Resolved]
  - Decreased appetite [Recovered/Resolved]
  - Tinnitus [Not Recovered/Not Resolved]
  - Vertigo [Not Recovered/Not Resolved]
  - Constipation [Not Recovered/Not Resolved]
  - Dizziness [Not Recovered/Not Resolved]
  - Epistaxis [Recovered/Resolved]
  - Hypophosphataemia [Recovered/Resolved]
  - Platelet count decreased [Recovered/Resolved]
  - Varices oesophageal [Not Recovered/Not Resolved]
  - Abdominal distension [Not Recovered/Not Resolved]
  - Hypotension [Recovered/Resolved]
  - Depression [Not Recovered/Not Resolved]
  - Hypomagnesaemia [Recovered/Resolved]
  - Cholangitis [Not Recovered/Not Resolved]
  - Hiccups [Recovered/Resolved]
  - Pyrexia [Not Recovered/Not Resolved]
  - Diarrhoea [Not Recovered/Not Resolved]

NARRATIVE: CASE EVENT DATE: 20230115
